FAERS Safety Report 13356826 (Version 1)
Quarter: 2017Q1

REPORT INFORMATION
  Report Type: Spontaneous
  Country: SE (occurrence: SE)
  Receive Date: 20170322
  Receipt Date: 20170322
  Transmission Date: 20170429
  Serious: Yes (Other)
  Sender: FDA-Public Use
  Company Number: SE-TEVA-748668ISR

PATIENT
  Age: 61 Year
  Sex: Female

DRUGS (3)
  1. LITHIUM (NOS) [Concomitant]
     Dates: start: 2014, end: 20170227
  2. LEVAXIN [Concomitant]
     Active Substance: LEVOTHYROXINE SODIUM
     Dosage: 50 MICROGRAM DAILY;
     Dates: start: 2014, end: 20170227
  3. ARITAVI ACTAVIS [Suspect]
     Active Substance: DULOXETINE
     Indication: DEPRESSION
     Dosage: 30 MILLIGRAM DAILY;
     Dates: start: 20170112

REACTIONS (8)
  - Hyperthyroidism [Not Recovered/Not Resolved]
  - Thyroiditis [Unknown]
  - Muscle spasms [Unknown]
  - Palpitations [Unknown]
  - Dizziness [Unknown]
  - Diarrhoea [Unknown]
  - Dry mouth [Unknown]
  - Tremor [Unknown]

NARRATIVE: CASE EVENT DATE: 201701
